FAERS Safety Report 6942460-8 (Version None)
Quarter: 2010Q3

REPORT INFORMATION
  Report Type: 
  Country: None (occurrence: None)
  Receive Date: 20100826
  Receipt Date: 20100824
  Transmission Date: 20110219
  Serious: Yes (Hospitalization)
  Sender: FDA-Public Use
  Company Number: GB-AMGEN-KDC431077

PATIENT
  Sex: Male

DRUGS (5)
  1. VECTIBIX [Suspect]
     Indication: GASTROOESOPHAGEAL CANCER
     Dates: start: 20100603
  2. EPIRUBICIN [Suspect]
     Dates: start: 20100603
  3. OXALIPLATIN [Suspect]
     Dates: start: 20100603
  4. CAPECITABINE [Suspect]
     Dates: start: 20100603
  5. OMEPRAZOLE [Concomitant]

REACTIONS (1)
  - DEEP VEIN THROMBOSIS [None]
